FAERS Safety Report 12770789 (Version 2)
Quarter: 2016Q4

REPORT INFORMATION
  Report Type: Report from Study
  Country: BR (occurrence: BR)
  Receive Date: 20160922
  Receipt Date: 20161011
  Transmission Date: 20170207
  Serious: Yes (Other)
  Sender: FDA-Public Use
  Company Number: BR-BIOGEN-2016BI00294788

PATIENT
  Age: 29 Year
  Sex: Female

DRUGS (2)
  1. AVONEX [Suspect]
     Active Substance: INTERFERON BETA-1A
     Indication: MULTIPLE SCLEROSIS
     Route: 065
     Dates: start: 20121221
  2. AVONEX [Suspect]
     Active Substance: INTERFERON BETA-1A
     Route: 065
     Dates: end: 20160830

REACTIONS (4)
  - Tendon rupture [Unknown]
  - Multiple sclerosis relapse [Recovered/Resolved with Sequelae]
  - Inflammation [Unknown]
  - Procedural pain [Unknown]

NARRATIVE: CASE EVENT DATE: 201605
